FAERS Safety Report 8080249-X (Version None)
Quarter: 2012Q1

REPORT INFORMATION
  Report Type: 
  Country: None (occurrence: None)
  Receive Date: 20120130
  Receipt Date: 20120117
  Transmission Date: 20120608
  Serious: Yes (Hospitalization)
  Sender: FDA-Public Use
  Company Number: JP-ELI_LILLY_AND_COMPANY-JP201110006809

PATIENT
  Age: 75 Year
  Sex: Female

DRUGS (2)
  1. FORTEO [Suspect]
     Dosage: UNK
     Route: 058
     Dates: start: 20120112, end: 20120114
  2. FORTEO [Suspect]
     Dosage: UNK
     Route: 058
     Dates: start: 20110901, end: 20111101

REACTIONS (3)
  - EXPIRED DRUG ADMINISTERED [None]
  - KNEE OPERATION [None]
  - INJECTION SITE ERYTHEMA [None]
